FAERS Safety Report 8494356-0 (Version None)
Quarter: 2012Q3

REPORT INFORMATION
  Report Type: 
  Country: None (occurrence: None)
  Receive Date: 20120709
  Receipt Date: 20120628
  Transmission Date: 20120928
  Serious: Yes (Other)
  Sender: FDA-Public Use
  Company Number: JP-CELGENEUS-087-21880-11061161

PATIENT
  Sex: Female

DRUGS (44)
  1. REVLIMID [Suspect]
     Dosage: 10 MILLIGRAM
     Route: 048
     Dates: start: 20110906, end: 20110926
  2. DEXAMETHASONE ACETATE [Suspect]
     Dosage: 20 MILLIGRAM
     Route: 048
     Dates: start: 20110614, end: 20110615
  3. DEXAMETHASONE ACETATE [Suspect]
     Dosage: 20 MILLIGRAM
     Route: 048
     Dates: start: 20110712, end: 20110713
  4. DEXAMETHASONE ACETATE [Suspect]
     Dosage: 5.7143 MILLIGRAM
     Route: 048
     Dates: start: 20110809, end: 20110824
  5. DEXAMETHASONE ACETATE [Suspect]
     Dosage: 20 MILLIGRAM
     Route: 048
     Dates: start: 20111108, end: 20111109
  6. DEXAMETHASONE ACETATE [Suspect]
     Dosage: 20 MILLIGRAM
     Route: 048
     Dates: start: 20111227, end: 20111227
  7. DEXAMETHASONE ACETATE [Suspect]
     Dosage: 20 MILLIGRAM
     Route: 048
     Dates: start: 20120103, end: 20120103
  8. ZOMETA [Suspect]
     Dosage: .1333 MILLIGRAM
     Route: 041
     Dates: start: 20100813, end: 20110523
  9. LANSOPRAZOLE [Concomitant]
     Dosage: 15 MILLIGRAM
     Route: 048
     Dates: start: 20110705, end: 20120409
  10. LASIX [Concomitant]
     Indication: PROPHYLAXIS
     Dosage: 20 MILLIGRAM
     Route: 048
     Dates: start: 20111031, end: 20111225
  11. REVLIMID [Suspect]
     Dosage: 10 MILLIGRAM
     Route: 048
     Dates: start: 20111004, end: 20111024
  12. ASPIRIN [Concomitant]
     Dosage: 100 MILLIGRAM
     Route: 048
     Dates: start: 20110906, end: 20120409
  13. DEXAMETHASONE ACETATE [Suspect]
     Dosage: 20 MILLIGRAM
     Route: 048
     Dates: start: 20110705, end: 20110706
  14. DEXAMETHASONE ACETATE [Suspect]
     Dosage: 5.7143 MILLIGRAM
     Route: 048
     Dates: start: 20111004, end: 20111019
  15. DEXAMETHASONE ACETATE [Suspect]
     Dosage: 20 MILLIGRAM
     Route: 048
     Dates: start: 20111206, end: 20111207
  16. ZOMETA [Suspect]
     Indication: PROPHYLAXIS
     Dosage: .1333 MILLIGRAM
     Route: 041
     Dates: start: 20110620, end: 20110808
  17. VALTREX [Concomitant]
     Indication: PROPHYLAXIS
     Dosage: 500 MILLIGRAM
     Route: 048
     Dates: start: 20111101, end: 20120104
  18. REVLIMID [Suspect]
     Dosage: 10 MILLIGRAM
     Route: 048
     Dates: start: 20111101, end: 20111121
  19. REVLIMID [Suspect]
     Dosage: 10 MILLIGRAM
     Route: 048
     Dates: start: 20111227, end: 20120104
  20. DEXAMETHASONE ACETATE [Suspect]
     Indication: REFRACTORY CANCER
     Dosage: 20 MILLIGRAM
     Route: 048
     Dates: start: 20110510, end: 20110511
  21. DEXAMETHASONE ACETATE [Suspect]
     Dosage: 20 MILLIGRAM
     Route: 048
     Dates: start: 20111129, end: 20111130
  22. ZOMETA [Suspect]
     Dosage: 4 MILLIGRAM
     Route: 041
     Dates: start: 20111003, end: 20111003
  23. AMLODIPINE [Concomitant]
     Indication: HYPERTENSION
     Dosage: 5 MILLIGRAM
     Route: 048
     Dates: start: 20110510, end: 20120409
  24. REVLIMID [Suspect]
     Dosage: 10 MILLIGRAM
     Route: 048
     Dates: start: 20110705, end: 20110718
  25. DEXAMETHASONE ACETATE [Suspect]
     Dosage: 20 MILLIGRAM
     Route: 048
     Dates: start: 20111101, end: 20111102
  26. ASPIRIN [Concomitant]
     Indication: PROPHYLAXIS
     Dosage: 100 MILLIGRAM
     Route: 048
     Dates: start: 20110426, end: 20110516
  27. ASPIRIN [Concomitant]
     Dosage: 100 MILLIGRAM
     Route: 048
     Dates: start: 20110607, end: 20110822
  28. ITRACONAZOLE [Concomitant]
     Indication: PROPHYLAXIS
     Dosage: 200 MILLIGRAM
     Route: 048
     Dates: start: 20111129, end: 20120104
  29. REVLIMID [Suspect]
     Indication: REFRACTORY CANCER
     Dosage: 10 MILLIGRAM
     Route: 048
     Dates: start: 20110607, end: 20110627
  30. REVLIMID [Suspect]
     Dosage: 10 MILLIGRAM
     Route: 048
     Dates: start: 20111129, end: 20111218
  31. ZOMETA [Suspect]
     Dosage: 4 MILLIGRAM
     Route: 041
     Dates: start: 20110905, end: 20110905
  32. ZOMETA [Suspect]
     Dosage: 4 MILLIGRAM
     Route: 041
     Dates: start: 20111128, end: 20111128
  33. LANSOPRAZOLE [Concomitant]
     Indication: PROPHYLAXIS
     Dosage: 15 MILLIGRAM
     Route: 048
     Dates: start: 20110510, end: 20110606
  34. LENDORMIN [Concomitant]
     Indication: INSOMNIA
     Dosage: .25 MILLIGRAM
     Route: 048
     Dates: start: 20110510, end: 20110606
  35. REVLIMID [Suspect]
     Indication: MULTIPLE MYELOMA
     Dosage: 10 MILLIGRAM
     Route: 048
     Dates: start: 20110426, end: 20110516
  36. REVLIMID [Suspect]
     Dosage: 10 MILLIGRAM
     Route: 048
     Dates: start: 20110809, end: 20110829
  37. DEXAMETHASONE ACETATE [Suspect]
     Indication: MULTIPLE MYELOMA
     Dosage: 20 MILLIGRAM
     Route: 048
     Dates: start: 20110426, end: 20110427
  38. DEXAMETHASONE ACETATE [Suspect]
     Dosage: 20 MILLIGRAM
     Route: 048
     Dates: start: 20110607, end: 20110608
  39. DEXAMETHASONE ACETATE [Suspect]
     Dosage: 20 MILLIGRAM
     Route: 048
     Dates: start: 20111116, end: 20111117
  40. DEXAMETHASONE ACETATE [Suspect]
     Dosage: 20 MILLIGRAM
     Route: 048
     Dates: start: 20111213, end: 20111214
  41. DEXAMETHASONE ACETATE [Suspect]
     Dosage: 20 MILLIGRAM
     Route: 048
     Dates: start: 20120110, end: 20120110
  42. DEXAMETHASONE ACETATE [Suspect]
     Dosage: 5.7143 MILLIGRAM
     Route: 048
     Dates: start: 20110906, end: 20110921
  43. ZOMETA [Suspect]
     Dosage: 4 MILLIGRAM
     Route: 041
     Dates: start: 20111226, end: 20111226
  44. PRAVASTATIN [Concomitant]
     Dosage: 10 MILLIGRAM
     Route: 048
     Dates: start: 20110510, end: 20120409

REACTIONS (5)
  - OSTEOMYELITIS [None]
  - HERPES ZOSTER [None]
  - NASOPHARYNGITIS [None]
  - OEDEMA [None]
  - PYREXIA [None]
